FAERS Safety Report 8712608 (Version 4)
Quarter: 2014Q4

REPORT INFORMATION
  Report Type: Spontaneous
  Country: US (occurrence: US)
  Receive Date: 20120808
  Receipt Date: 20141203
  Transmission Date: 20150529
  Serious: Yes (Hospitalization, Disabling)
  Sender: FDA-Public Use
  Company Number: US-BAYER-2012-078795

PATIENT
  Age: 20 Year
  Sex: Female
  Weight: 70.3 kg

DRUGS (9)
  1. EXCEDRIN [Concomitant]
     Active Substance: ACETAMINOPHEN\ASPIRIN\CAFFEINE
     Indication: MIGRAINE
     Dosage: 1-2 PILLS AS NEEDED
     Dates: start: 2003
  2. ADVIL [Concomitant]
     Active Substance: IBUPROFEN
     Indication: ANALGESIC THERAPY
     Dosage: 1-2 PILLS AS NEEDED
     Dates: start: 1990
  3. ALEVE [Concomitant]
     Active Substance: NAPROXEN SODIUM
     Indication: ANALGESIC THERAPY
     Dosage: 1-2 PILLS AS NEEDED
     Dates: start: 1990
  4. VITAMIN C [Concomitant]
     Active Substance: ASCORBIC ACID
     Dosage: UNK
     Dates: start: 1990
  5. IBUPROFEN. [Concomitant]
     Active Substance: IBUPROFEN
  6. YAZ [Suspect]
     Active Substance: DROSPIRENONE\ETHINYL ESTRADIOL
     Indication: ACNE
  7. YAZ [Suspect]
     Active Substance: DROSPIRENONE\ETHINYL ESTRADIOL
     Indication: CONTRACEPTION
     Dosage: UNK
     Route: 048
     Dates: start: 201012, end: 201102
  8. YAZ [Suspect]
     Active Substance: DROSPIRENONE\ETHINYL ESTRADIOL
     Indication: PREMENSTRUAL SYNDROME
  9. BAYER ASPIRIN [Concomitant]
     Active Substance: ASPIRIN
     Indication: ANALGESIC THERAPY
     Dosage: 1-2 PILLS AS NEEDED
     Dates: start: 1990

REACTIONS (7)
  - Sensory loss [None]
  - Cerebral artery thrombosis [None]
  - Injury [None]
  - Cerebrovascular accident [None]
  - Deformity [None]
  - Coordination abnormal [None]
  - Pain [None]

NARRATIVE: CASE EVENT DATE: 20110226
